FAERS Safety Report 18401539 (Version 1)
Quarter: 2020Q4

REPORT INFORMATION
  Report Type: Other
  Country: CA (occurrence: CA)
  Receive Date: 20201020
  Receipt Date: 20201020
  Transmission Date: 20210114
  Serious: Yes (Hospitalization, Other)
  Sender: FDA-Public Use
  Company Number: CA-CELLTRION INC.-2020CA028942

PATIENT

DRUGS (15)
  1. AZATHIOPRINE. [Concomitant]
     Active Substance: AZATHIOPRINE
  2. CORTISONE [Concomitant]
     Active Substance: CORTISONE
     Route: 065
  3. INVEGA [Concomitant]
     Active Substance: PALIPERIDONE
  4. SEROQUEL [Concomitant]
     Active Substance: QUETIAPINE FUMARATE
  5. PREDNISONE. [Concomitant]
     Active Substance: PREDNISONE
  6. RITUXIMAB (UNKNOWN) [Suspect]
     Active Substance: RITUXIMAB
     Indication: LUPUS NEPHRITIS
  7. DAPSONE. [Concomitant]
     Active Substance: DAPSONE
  8. IRON [Concomitant]
     Active Substance: IRON
  9. DIPHENHYDRAMINE HYDROCHLORIDE. [Concomitant]
     Active Substance: DIPHENHYDRAMINE HYDROCHLORIDE
     Indication: PREMEDICATION
     Dosage: 50 MILLIGRAM
     Route: 048
  10. ACETAMINOPHEN. [Concomitant]
     Active Substance: ACETAMINOPHEN
     Indication: PREMEDICATION
     Dosage: 1000 MILLIGRAM
     Route: 048
  11. PROLIA [Concomitant]
     Active Substance: DENOSUMAB
  12. RITUXIMAB (UNKNOWN) [Suspect]
     Active Substance: RITUXIMAB
     Indication: NEUROPSYCHIATRIC LUPUS
     Dosage: 1000 MILLIGRAM, 1 EVERY 2 WEEKS
     Route: 042
  13. METHYLPREDNISOLONE. [Concomitant]
     Active Substance: METHYLPREDNISOLONE
     Indication: PREMEDICATION
     Dosage: 100 MILLIGRAM
     Route: 042
  14. CLOZARIL [Concomitant]
     Active Substance: CLOZAPINE
  15. ZYPREXA [Concomitant]
     Active Substance: OLANZAPINE

REACTIONS (7)
  - Alopecia [Unknown]
  - Psychotic disorder [Unknown]
  - Myalgia [Unknown]
  - Product use in unapproved indication [Unknown]
  - Hot flush [Unknown]
  - Heart rate increased [Unknown]
  - Off label use [Unknown]
